FAERS Safety Report 17157916 (Version 1)
Quarter: 2019Q4

REPORT INFORMATION
  Report Type: Spontaneous
  Country: DE (occurrence: DE)
  Receive Date: 20191216
  Receipt Date: 20191216
  Transmission Date: 20200122
  Serious: Yes (Death)
  Sender: FDA-Public Use
  Company Number: DE-PFIZER INC-2019538452

PATIENT
  Age: 48 Year
  Sex: Male

DRUGS (7)
  1. HYDROMORPHONE [Suspect]
     Active Substance: HYDROMORPHONE
     Dosage: 48 MG, QD
     Route: 065
  2. PREGABALIN. [Suspect]
     Active Substance: PREGABALIN
     Indication: PAIN
     Dosage: 300 MG, QD
     Route: 065
  3. METAMIZOLE [Suspect]
     Active Substance: METAMIZOLE
     Dosage: 4 DF, QD
     Route: 065
  4. LORAZEPAM. [Suspect]
     Active Substance: LORAZEPAM
     Indication: PAIN
     Dosage: UNK
     Route: 065
  5. MIRTAZAPINE. [Suspect]
     Active Substance: MIRTAZAPINE
     Indication: PAIN
     Dosage: UNK
     Route: 065
  6. LEVOMETHADONE [Suspect]
     Active Substance: LEVOMETHADONE
     Dosage: UNK (4 X 5ML)
     Route: 065
  7. LEVOMETHADONE [Suspect]
     Active Substance: LEVOMETHADONE
     Dosage: UNK (3 X 2ML)
     Route: 065

REACTIONS (5)
  - Panic attack [Unknown]
  - Anxiety [Unknown]
  - Death [Fatal]
  - Drug ineffective [Unknown]
  - Insomnia [Unknown]
